FAERS Safety Report 15703339 (Version 1)
Quarter: 2018Q4

REPORT INFORMATION
  Report Type: Spontaneous
  Country: US (occurrence: US)
  Receive Date: 20181127
  Receipt Date: 20181127
  Transmission Date: 20190205
  Serious: No
  Sender: FDA-Public Use
  Company Number: None

PATIENT
  Age: 69 Year
  Sex: Male

DRUGS (1)
  1. EMPAGLIFLOZIN [Suspect]
     Active Substance: EMPAGLIFLOZIN
     Indication: DIABETES MELLITUS
     Dosage: ?          OTHER DOSE:12.5 MG;OTHER FREQUENCY:AM;?
     Route: 048
     Dates: start: 20181029, end: 20181120

REACTIONS (11)
  - Vomiting [None]
  - Pyrexia [None]
  - Dysuria [None]
  - Abdominal pain [None]
  - Asthenia [None]
  - Urticaria [None]
  - Nausea [None]
  - Constipation [None]
  - Pollakiuria [None]
  - Diarrhoea [None]
  - Abdominal pain upper [None]

NARRATIVE: CASE EVENT DATE: 20181120
